FAERS Safety Report 10247151 (Version 3)
Quarter: 2014Q4

REPORT INFORMATION
  Report Type: Spontaneous
  Country: US (occurrence: US)
  Receive Date: 20140619
  Receipt Date: 20141119
  Transmission Date: 20150528
  Serious: Yes (Hospitalization)
  Sender: FDA-Public Use
  Company Number: US-BAYER-2014-090173

PATIENT
  Age: 25 Year
  Sex: Female
  Weight: 60.32 kg

DRUGS (1)
  1. MIRENA [Suspect]
     Active Substance: LEVONORGESTREL
     Indication: CONTRACEPTION
     Dosage: 20 MCG/24HR, CONT
     Route: 015
     Dates: start: 20100330, end: 20130115

REACTIONS (10)
  - Injury [None]
  - Stress [None]
  - Device issue [None]
  - Pain [None]
  - Depression [None]
  - Anxiety [None]
  - Pregnancy with contraceptive device [None]
  - Uterine perforation [None]
  - Drug ineffective [None]
  - Emotional distress [None]

NARRATIVE: CASE EVENT DATE: 201205
